FAERS Safety Report 9323941 (Version 2)
Quarter: 2013Q3

REPORT INFORMATION
  Report Type: Spontaneous
  Country: US (occurrence: US)
  Receive Date: 20130603
  Receipt Date: 20130722
  Transmission Date: 20140515
  Serious: Yes (Other)
  Sender: FDA-Public Use
  Company Number: US-PFIZER INC-2013166920

PATIENT
  Sex: 0

DRUGS (6)
  1. LYRICA [Suspect]
     Indication: NEURALGIA
     Dosage: UNK
  2. COCAINE [Suspect]
  3. HEROIN [Suspect]
  4. PHENCYCLIDINE [Suspect]
  5. KETAMINE [Suspect]
  6. MARIJUANA [Suspect]

REACTIONS (1)
  - Drug abuse [Unknown]
